FAERS Safety Report 19579510 (Version 2)
Quarter: 2021Q3

REPORT INFORMATION
  Report Type: Spontaneous
  Country: IT (occurrence: IT)
  Receive Date: 20210720
  Receipt Date: 20210809
  Transmission Date: 20211014
  Serious: Yes (Hospitalization, Other)
  Sender: FDA-Public Use
  Company Number: IT-AUROBINDO-AUR-APL-2021-030439

PATIENT
  Age: 76 Year
  Sex: Male
  Weight: 70 kg

DRUGS (4)
  1. TAMSULOSIN [Concomitant]
     Active Substance: TAMSULOSIN
     Indication: BENIGN PROSTATIC HYPERPLASIA
     Dosage: UNK
     Route: 065
  2. DUTASTERIDE. [Concomitant]
     Active Substance: DUTASTERIDE
     Indication: BENIGN PROSTATIC HYPERPLASIA
     Dosage: UNK
     Route: 065
  3. AMIODARONE TABLETS [Suspect]
     Active Substance: AMIODARONE
     Indication: ARRHYTHMIA
     Dosage: 200 MG PER DAY FOR 5 DAYS A WEEK (FROM MONDAY TO FRIDAY)
     Route: 048
     Dates: start: 20190204, end: 20200422
  4. RIFAXIMIN. [Concomitant]
     Active Substance: RIFAXIMIN
     Indication: DIVERTICULUM
     Dosage: UNK UNK, CYCLICAL
     Route: 065

REACTIONS (8)
  - Pericardial fibrosis [Recovered/Resolved]
  - Organising pneumonia [Recovered/Resolved]
  - Acute lung injury [Recovered/Resolved]
  - Pleural effusion [Recovered/Resolved]
  - Extrasystoles [Recovered/Resolved]
  - Ventricular extrasystoles [Recovered/Resolved]
  - Cardiotoxicity [Recovered/Resolved]
  - Bradycardia [Recovered/Resolved]

NARRATIVE: CASE EVENT DATE: 2020
